FAERS Safety Report 20411404 (Version 1)
Quarter: 2022Q1

REPORT INFORMATION
  Report Type: Spontaneous
  Country: US (occurrence: US)
  Receive Date: 20220201
  Receipt Date: 20220201
  Transmission Date: 20220423
  Serious: No
  Sender: FDA-Public Use
  Company Number: US-CHIESI USA INC.-US-2021CHI000060

PATIENT
  Sex: Female

DRUGS (1)
  1. ZILEUTON [Suspect]
     Active Substance: ZILEUTON
     Indication: Product used for unknown indication
     Dosage: 600 MG, QID
     Route: 048
     Dates: start: 201902

REACTIONS (1)
  - Product dose omission issue [Unknown]
